FAERS Safety Report 8341891-1 (Version None)
Quarter: 2012Q2

REPORT INFORMATION
  Report Type: 
  Country: None (occurrence: None)
  Receive Date: 20120503
  Receipt Date: 20120417
  Transmission Date: 20120825
  Serious: Yes (Other)
  Sender: FDA-Public Use
  Company Number: JPI-P-020822

PATIENT
  Age: 60 Year
  Sex: Female
  Weight: 55.3388 kg

DRUGS (19)
  1. CYCLOSPORINE (EYE DROPS) [Concomitant]
  2. ACETYLSALICYLIC ACID SRT [Concomitant]
  3. CLONAZEPAM (TABLETS0 [Concomitant]
  4. SIMVASTATIN [Concomitant]
  5. NIACIN ER (TABLETS) [Concomitant]
  6. RAMIPRIL [Concomitant]
  7. LACTOBACILLUS RHAMNOSUS (CAPSULES) [Concomitant]
  8. DESVENLAFAXINE SUCCINATE (TABLETS) [Concomitant]
  9. PANTOPRAZOLE [Concomitant]
  10. FISH OIL (CAPSULES) [Concomitant]
  11. AYR SINUS RINSE KIT [Concomitant]
  12. ASCORBIC ACID (TABLETS) [Concomitant]
  13. VITAMIN D (CAPSULES) [Concomitant]
  14. VITAMIN B COMPLEX CAP [Concomitant]
  15. XYREM [Suspect]
     Indication: INSOMNIA
     Dosage: 6 GM (3 GM, 2 IN 1 D), ORAL
     Route: 048
     Dates: start: 20110726
  16. HYDROCHLOROTHIAZIDE [Concomitant]
  17. GABAPENTIN [Concomitant]
  18. ASPIRIN BUFFERED (TABLETS) [Concomitant]
  19. ZOLPIDEM ER (TABLETS) [Concomitant]

REACTIONS (15)
  - BLOOD PRESSURE INCREASED [None]
  - BLOOD PRESSURE DECREASED [None]
  - BLOOD PRESSURE SYSTOLIC INCREASED [None]
  - NAUSEA [None]
  - LOW DENSITY LIPOPROTEIN INCREASED [None]
  - INSOMNIA [None]
  - PARAESTHESIA [None]
  - SELF INJURIOUS BEHAVIOUR [None]
  - DECREASED APPETITE [None]
  - SLEEP DISORDER [None]
  - FATIGUE [None]
  - CATARACT OPERATION [None]
  - BLOOD GLUCOSE INCREASED [None]
  - DEPRESSION [None]
  - VISION BLURRED [None]
